FAERS Safety Report 24041886 (Version 1)
Quarter: 2024Q3

REPORT INFORMATION
  Report Type: Spontaneous
  Country: PT (occurrence: PT)
  Receive Date: 20240702
  Receipt Date: 20240702
  Transmission Date: 20241016
  Serious: Yes (Death, Other)
  Sender: MYLAN
  Company Number: PT-ABBVIE-5813011

PATIENT

DRUGS (3)
  1. ESCITALOPRAM [Suspect]
     Active Substance: ESCITALOPRAM OXALATE
     Indication: Product used for unknown indication
     Dosage: 5 MILLIGRAM
     Route: 048
  2. NITROGLYCERIN [Suspect]
     Active Substance: NITROGLYCERIN
     Indication: Product used for unknown indication
     Dosage: UNK
     Route: 065
  3. ADALIMUMAB [Suspect]
     Active Substance: ADALIMUMAB\ISOPROPYL ALCOHOL
     Indication: Product used for unknown indication
     Dosage: 35 GRAM
     Route: 058

REACTIONS (13)
  - Dizziness [Fatal]
  - Chills [Fatal]
  - Insomnia [Fatal]
  - Arthralgia [Fatal]
  - Coma [Fatal]
  - Tachycardia [Fatal]
  - Diarrhoea [Fatal]
  - Haematemesis [Fatal]
  - Amaurosis fugax [Fatal]
  - Fall [Fatal]
  - Blindness [Fatal]
  - Eye pain [Fatal]
  - Fatigue [Fatal]
